FAERS Safety Report 7162829-9 (Version None)
Quarter: 2010Q4

REPORT INFORMATION
  Report Type: 
  Country: None (occurrence: None)
  Receive Date: 20101215
  Receipt Date: 20091224
  Transmission Date: 20110411
  Serious: Yes (Other)
  Sender: FDA-Public Use
  Company Number: US-PFIZER INC-2009301296

PATIENT
  Sex: Female
  Weight: 68.481 kg

DRUGS (8)
  1. LYRICA [Suspect]
     Indication: NEURALGIA
     Dosage: 75 MG, 2X/DAY
     Route: 048
     Dates: start: 20080916, end: 20091124
  2. LYRICA [Suspect]
     Indication: VULVOVAGINAL PAIN
  3. METFORMIN [Concomitant]
     Dosage: UNK
  4. IRBESARTAN [Concomitant]
     Dosage: UNK
  5. BUSPAR [Concomitant]
     Dosage: UNK
  6. PRILOSEC [Concomitant]
     Dosage: UNK
  7. FEXOFENADINE HCL [Concomitant]
     Dosage: UNK
  8. AVALIDE [Concomitant]
     Dosage: UNK

REACTIONS (4)
  - COUGH [None]
  - LARYNGEAL OEDEMA [None]
  - ODYNOPHAGIA [None]
  - WEIGHT INCREASED [None]
